FAERS Safety Report 6110680-0 (Version None)
Quarter: 2009Q1

REPORT INFORMATION
  Report Type: 
  Country: None (occurrence: None)
  Receive Date: 20090303
  Receipt Date: 20090218
  Transmission Date: 20090719
  Serious: Yes (Death, Life-Threatening, Hospitalization)
  Sender: FDA-Public Use
  Company Number: WSDF_00567

PATIENT
  Age: 74 Year
  Sex: Female
  Weight: 58 kg

DRUGS (20)
  1. WINRHO SDF [Suspect]
     Indication: IDIOPATHIC THROMBOCYTOPENIC PURPURA
     Dosage: 2900 MCG ONCE IV
     Route: 042
     Dates: start: 20060720, end: 20060720
  2. SYNTHROID [Concomitant]
  3. TENORMIN [Concomitant]
  4. ZOCOR [Concomitant]
  5. CELEBREX [Concomitant]
  6. FOSAMAX [Concomitant]
  7. NEXIUM [Concomitant]
  8. AMITRIPTLINE HYDROCHLORIDE TAB [Concomitant]
  9. ASPIRIN [Concomitant]
  10. ATROVENT [Concomitant]
  11. PREDNISONE [Concomitant]
  12. AMBIEN [Concomitant]
  13. DURICEF [Concomitant]
  14. GLUCOSAMINE [Concomitant]
  15. CHONDROITIN A [Concomitant]
  16. MSM [Concomitant]
  17. VITAMINS [Concomitant]
  18. MINERALS NOS [Concomitant]
  19. CALCIUM [Concomitant]
  20. ADVAIR DISKUS 100/50 [Concomitant]

REACTIONS (40)
  - ACUTE MYOCARDIAL INFARCTION [None]
  - ANAPHYLACTIC REACTION [None]
  - ANXIETY [None]
  - ARRHYTHMIA [None]
  - ATRIAL FIBRILLATION [None]
  - BLOOD PRESSURE INCREASED [None]
  - BRADYCARDIA [None]
  - CARDIAC ARREST [None]
  - CARDIO-RESPIRATORY ARREST [None]
  - CARDIOMEGALY [None]
  - CHILLS [None]
  - CYANOSIS [None]
  - DRUG HYPERSENSITIVITY [None]
  - DYSPNOEA [None]
  - FEELING COLD [None]
  - HAEMOLYSIS [None]
  - HEART RATE INCREASED [None]
  - HYPERVENTILATION [None]
  - HYPOTENSION [None]
  - INFUSION RELATED REACTION [None]
  - LIVEDO RETICULARIS [None]
  - LUNG INFILTRATION [None]
  - MITRAL VALVE INCOMPETENCE [None]
  - MUCOSAL DISCOLOURATION [None]
  - MUSCLE SPASMS [None]
  - NAUSEA [None]
  - PALLOR [None]
  - PLEURAL EFFUSION [None]
  - PULMONARY EMBOLISM [None]
  - RESPIRATORY DISTRESS [None]
  - RESPIRATORY FAILURE [None]
  - RESPIRATORY RATE INCREASED [None]
  - SHOCK [None]
  - SPLENOMEGALY [None]
  - SWOLLEN TONGUE [None]
  - TACHYPNOEA [None]
  - TRICUSPID VALVE INCOMPETENCE [None]
  - UNRESPONSIVE TO STIMULI [None]
  - VENTRICULAR TACHYCARDIA [None]
  - WHEEZING [None]
